FAERS Safety Report 7850169-1 (Version None)
Quarter: 2011Q4

REPORT INFORMATION
  Report Type: 
  Country: None (occurrence: None)
  Receive Date: 20111024
  Receipt Date: 20111013
  Transmission Date: 20120403
  Serious: Yes (Hospitalization)
  Sender: FDA-Public Use
  Company Number: 2011SP003489

PATIENT

DRUGS (3)
  1. LATUDA [Suspect]
     Dosage: 40 MG; ORAL; 80 MG; ORAL
     Route: 048
     Dates: start: 20110722, end: 20110101
  2. LATUDA [Suspect]
     Dosage: 40 MG; ORAL; 80 MG; ORAL
     Route: 048
     Dates: start: 20110715, end: 20110721
  3. ZYPREXA [Concomitant]

REACTIONS (1)
  - AGGRESSION [None]
